FAERS Safety Report 12091050 (Version 1)
Quarter: 2016Q1

REPORT INFORMATION
  Report Type: Spontaneous
  Country: IT (occurrence: IT)
  Receive Date: 20160218
  Receipt Date: 20160218
  Transmission Date: 20160526
  Serious: Yes (Life-Threatening)
  Sender: FDA-Public Use
  Company Number: IT-PFIZER INC-2016093307

PATIENT
  Age: 52 Year
  Sex: Male

DRUGS (1)
  1. SUTENT [Suspect]
     Active Substance: SUNITINIB MALATE
     Indication: RENAL CANCER
     Dosage: 50 MG, DAILY
     Route: 048
     Dates: start: 20150915, end: 20151115

REACTIONS (2)
  - Hypertension [Recovered/Resolved]
  - Pancytopenia [Recovered/Resolved]

NARRATIVE: CASE EVENT DATE: 20151115
